FAERS Safety Report 7450605-9 (Version None)
Quarter: 2011Q2

REPORT INFORMATION
  Report Type: 
  Country: None (occurrence: None)
  Receive Date: 20110502
  Receipt Date: 20110418
  Transmission Date: 20111010
  Serious: Yes (Other)
  Sender: FDA-Public Use
  Company Number: CH-MYLANLABS-2011S1008274

PATIENT
  Age: 72 Year
  Sex: Male

DRUGS (3)
  1. TRAZODONE HCL [Suspect]
     Indication: DEPRESSION
     Dosage: AUGMENTED UP TO 300MG
     Route: 065
  2. BUPROPION HCL [Suspect]
     Indication: DEPRESSION
     Dosage: AUGMENTED UP TO 300MG
     Route: 065
  3. LITHIUM CARBONATE [Suspect]
     Indication: DEPRESSION
     Route: 065

REACTIONS (1)
  - METABOLIC ENCEPHALOPATHY [None]
